FAERS Safety Report 5050809-9 (Version None)
Quarter: 2006Q3

REPORT INFORMATION
  Report Type: 
  Country: None (occurrence: None)
  Receive Date: 20060713
  Receipt Date: 20060207
  Transmission Date: 20061208
  Serious: Yes (Death, Life-Threatening, Hospitalization)
  Sender: FDA-Public Use
  Company Number: DE-MERCK-0602DEU00036

PATIENT
  Age: 83 Year
  Sex: Female

DRUGS (4)
  1. FOSAMAX [Suspect]
     Indication: OSTEOPOROSIS
     Route: 048
     Dates: start: 20030823, end: 20060121
  2. LISINOPRIL [Concomitant]
     Route: 048
     Dates: start: 20021209, end: 20060122
  3. HYDROCHLOROTHIAZIDE [Concomitant]
     Route: 048
     Dates: start: 20021209, end: 20060122
  4. CALCIUM (UNSPECIFIED) AND VITAMIN D (UNSPECIFIED) [Concomitant]
     Route: 048
     Dates: start: 20030823, end: 20060122

REACTIONS (31)
  - ANOREXIA [None]
  - ASTHMA [None]
  - ATRIAL FIBRILLATION [None]
  - BRONCHITIS [None]
  - CARDIAC FAILURE [None]
  - CARDIOVASCULAR INSUFFICIENCY [None]
  - CHEST PAIN [None]
  - CONCUSSION [None]
  - CONFUSIONAL STATE [None]
  - CONTUSION [None]
  - DIARRHOEA [None]
  - DRUG ADMINISTRATION ERROR [None]
  - DYSPHAGIA [None]
  - DYSPNOEA [None]
  - FUNGAL INFECTION [None]
  - GASTROINTESTINAL INFLAMMATION [None]
  - HAEMARTHROSIS [None]
  - HUMERUS FRACTURE [None]
  - LEUKOCYTOSIS [None]
  - OESOPHAGITIS [None]
  - PNEUMONIA BACTERIAL [None]
  - PULMONARY EMBOLISM [None]
  - PYREXIA [None]
  - RADIUS FRACTURE [None]
  - RENAL CYST [None]
  - RESORPTION BONE INCREASED [None]
  - RESPIRATORY FAILURE [None]
  - RESTLESSNESS [None]
  - SKIN LACERATION [None]
  - URINARY RETENTION [None]
  - VISUAL DISTURBANCE [None]
